FAERS Safety Report 25918545 (Version 1)
Quarter: 2025Q4

REPORT INFORMATION
  Report Type: Spontaneous
  Country: US (occurrence: None)
  Receive Date: 20251010
  Receipt Date: 20251010
  Transmission Date: 20260118
  Serious: Yes (Other)
  Sender: FDA-CTU
  Company Number: None

PATIENT
  Age: 64 Year
  Sex: Female
  Weight: 48.53 kg

DRUGS (11)
  1. RECLAST [Suspect]
     Active Substance: ZOLEDRONIC ACID
     Indication: Osteoporosis
     Dosage: OTHER QUANTITY : 1 INFUSION ;?OTHER FREQUENCY : INFUSION ;?
     Route: 042
     Dates: start: 20250918, end: 20250918
  2. HERBALS\TURMERIC [Concomitant]
     Active Substance: HERBALS\TURMERIC
  3. VITAMIN C [Concomitant]
     Active Substance: ASCORBIC ACID
  4. Voltaren hip bursitis [Concomitant]
  5. eye drops/eye lid wipes dry eyes [Concomitant]
  6. VITAMIN D3 [Concomitant]
     Active Substance: CHOLECALCIFEROL
  7. CALTRATE [Concomitant]
     Active Substance: CALCIUM CARBONATE
  8. rizatriptan/maxalt for migraines as needed [Concomitant]
  9. meloxicam as needed for bursitis in left hip [Concomitant]
  10. hydrocortisone 2.5% cream-skin rash [Concomitant]
  11. trazodone for sleep disruption as needed [Concomitant]

REACTIONS (9)
  - Infusion related reaction [None]
  - Bone pain [None]
  - Nausea [None]
  - Vomiting [None]
  - Dehydration [None]
  - Decreased appetite [None]
  - Migraine [None]
  - Constipation [None]
  - Myalgia [None]

NARRATIVE: CASE EVENT DATE: 20250918
